FAERS Safety Report 8869894 (Version 1)
Quarter: 2012Q4

REPORT INFORMATION
  Report Type: Spontaneous
  Country: US (occurrence: None)
  Receive Date: 20121025
  Receipt Date: 20121025
  Transmission Date: 20130627
  Serious: Yes (Hospitalization)
  Sender: FDA-Public Use
  Company Number: None

PATIENT
  Age: 72 Year
  Sex: Male
  Weight: 76.9 kg

DRUGS (2)
  1. GEMCITABINE [Suspect]
     Indication: NON-SMALL CELL LUNG CANCER
     Dosage: N/A Weekly x2 doses intravenous
patient did not receive drug
  2. INVESTIGATIONAL STUDY DRUG [Suspect]
     Indication: NON-SMALL CELL LUNG CANCER
     Dosage: N/A Weekly x2 doses intravenous
patient did not receive drug

REACTIONS (1)
  - No adverse event [None]
